FAERS Safety Report 10518246 (Version 4)
Quarter: 2015Q1

REPORT INFORMATION
  Report Type: Spontaneous
  Country: US (occurrence: US)
  Receive Date: 20141015
  Receipt Date: 20150115
  Transmission Date: 20150720
  Serious: Yes (Hospitalization, Other)
  Sender: FDA-Public Use
  Company Number: US-PFIZER INC-2014277626

PATIENT
  Age: 70 Year
  Sex: Female
  Weight: 68 kg

DRUGS (19)
  1. TEGRETOL [Suspect]
     Active Substance: CARBAMAZEPINE
     Indication: TRIGEMINAL NEURALGIA
     Dosage: UNK, 4X/DAY
     Dates: start: 1984
  2. ACID REDUCER [Concomitant]
     Active Substance: CIMETIDINE\FAMOTIDINE\RANITIDINE HYDROCHLORIDE
     Dosage: 150 MG, 1 AT BED TIME
  3. CETRIZINE [Concomitant]
     Active Substance: CETIRIZINE HYDROCHLORIDE
     Indication: HYPERSENSITIVITY
     Dosage: 10 MG, 2 TABLETS PER DAY AS NEEDED
  4. OXYCODONE [Concomitant]
     Active Substance: OXYCODONE
     Indication: PAIN
     Dosage: 30 MG, 1 OR 2 TABLETS 3 OR 4 TIMES DAILY
  5. ALBUTEROL. [Concomitant]
     Active Substance: ALBUTEROL
     Indication: HYPERSENSITIVITY
  6. CALCIUM + VIT D [Concomitant]
     Active Substance: CALCIUM\VITAMIN D
     Dosage: 500 MG, 3X/DAY
  7. VITAMIN D [Concomitant]
     Active Substance: CHOLECALCIFEROL
     Dosage: 1000 MG, DAILY
  8. LYRICA [Suspect]
     Active Substance: PREGABALIN
     Indication: TRIGEMINAL NEURALGIA
     Dosage: 150 MG, 2X/DAY
     Route: 048
     Dates: start: 2011
  9. AMERGE [Suspect]
     Active Substance: NARATRIPTAN HYDROCHLORIDE
     Indication: MIGRAINE
     Dosage: 2.5 MG, AS NEEDED (MAY REPEAT DOSE IN 4 HOURS)
     Route: 048
     Dates: start: 20120327, end: 20120412
  10. TRAMADOL [Concomitant]
     Active Substance: TRAMADOL
     Indication: NEUROPATHY PERIPHERAL
     Dosage: 2 TABLETS, 3 TIMES DAILY AS NEEDED
  11. ALBUTEROL. [Concomitant]
     Active Substance: ALBUTEROL
     Indication: WHEEZING
     Dosage: 90 ?G, 2X/DAY
     Route: 048
  12. TIZANIDINE (TIZANIDINE) [Concomitant]
     Active Substance: TIZANIDINE
     Dosage: 4 MG, 1X/DAY (4 MG, AT BEDTIME AND 1 TABLET IF AWAKENED AND UNABLE TO RESUME SLEEP)
  13. TOPAMAX [Concomitant]
     Active Substance: TOPIRAMATE
     Dosage: 25 MG 4 TABLETS IN MORNING AND 4 TABLETS AT NIGHT
  14. LYRICA [Suspect]
     Active Substance: PREGABALIN
     Dosage: 75 MG IN THE MORNING AND AFTERNOON AND 150MG IN NIGHT
     Route: 048
     Dates: start: 2011
  15. DIAZEPAM. [Concomitant]
     Active Substance: DIAZEPAM
     Dosage: 10 MG, AT BED TIME
  16. NASONEX [Concomitant]
     Active Substance: MOMETASONE FUROATE
     Indication: HYPERSENSITIVITY
     Dosage: 50 ?G, 2X/DAY
  17. CHLORPHENIRAMINE MALEATE. [Concomitant]
     Active Substance: CHLORPHENIRAMINE MALEATE
     Indication: NASAL CONGESTION
     Dosage: 4 MG, AS NEEDED (4 MG 1 OR 2 TABLETS EVERY 4 HOURS)
  18. ZOMIG [Concomitant]
     Active Substance: ZOLMITRIPTAN
     Indication: MIGRAINE
     Dosage: 5 MG, AS NEEDED
  19. PHENERGAN [Concomitant]
     Active Substance: PROMETHAZINE HYDROCHLORIDE
     Indication: NAUSEA
     Dosage: 25 MG, AS NEEDED (25 MG, 1 TABLET UP TO 3 TIMES DAILY)

REACTIONS (12)
  - Rash [Unknown]
  - Diplopia [Unknown]
  - Fall [Unknown]
  - Drug intolerance [Unknown]
  - Loss of consciousness [Unknown]
  - Syncope [Recovered/Resolved]
  - Skin discolouration [Unknown]
  - Tremor [Not Recovered/Not Resolved]
  - Hyponatraemia [Unknown]
  - Feeling abnormal [Recovered/Resolved]
  - Limb discomfort [Not Recovered/Not Resolved]
  - Abscess limb [Unknown]

NARRATIVE: CASE EVENT DATE: 2011
